FAERS Safety Report 7517605-1 (Version None)
Quarter: 2011Q2

REPORT INFORMATION
  Report Type: 
  Country: None (occurrence: None)
  Receive Date: 20110601
  Receipt Date: 20110519
  Transmission Date: 20111010
  Serious: Yes (Other)
  Sender: FDA-Public Use
  Company Number: US-ELI_LILLY_AND_COMPANY-US201006002034

PATIENT
  Sex: Female

DRUGS (9)
  1. FORTEO [Suspect]
     Dosage: 20 UG, QD
  2. FORTEO [Suspect]
     Dosage: 20 UG, QD
  3. CHLORZOXAZONE [Concomitant]
     Dosage: 500 UG, AS NEEDED
  4. MIRAPEX [Concomitant]
     Dosage: 0.25 MG, 2/D
  5. MS CONTIN [Concomitant]
     Dosage: 30 MG, 3/D
  6. FORTEO [Suspect]
     Indication: OSTEOPOROSIS
     Dosage: 20 UG, QD
     Dates: start: 20090601
  7. MS IR [Concomitant]
     Dosage: 15 MG, AS NEEDED
  8. VASOTEC [Concomitant]
     Dosage: 2.5 MG, DAILY (1/D)
  9. VYTORIN [Concomitant]
     Dosage: UNK, DAILY (1/D)

REACTIONS (18)
  - UPPER LIMB FRACTURE [None]
  - EXOSTOSIS [None]
  - ERYTHEMA [None]
  - EAR DISCOMFORT [None]
  - NASOPHARYNGITIS [None]
  - OROPHARYNGEAL PAIN [None]
  - SCAB [None]
  - BLISTER [None]
  - SINUSITIS [None]
  - DYSPNOEA [None]
  - CYST [None]
  - SKIN EXFOLIATION [None]
  - ARTHROPATHY [None]
  - BURNS SECOND DEGREE [None]
  - PNEUMONIA [None]
  - ORAL HERPES [None]
  - MUSCULOSKELETAL PAIN [None]
  - PRURITUS [None]
